FAERS Safety Report 17978335 (Version 2)
Quarter: 2020Q3

REPORT INFORMATION
  Report Type: Spontaneous
  Country: DE (occurrence: DE)
  Receive Date: 20200703
  Receipt Date: 20200826
  Transmission Date: 20201103
  Serious: Yes (Other)
  Sender: FDA-Public Use
  Company Number: NVSC2020DE149533

PATIENT
  Age: 80 Year
  Sex: Female

DRUGS (1)
  1. LETROHEXAL 2,5 MG FILMTABLETTEN [Suspect]
     Active Substance: LETROZOLE
     Indication: BREAST CANCER
     Dosage: UNK UNK, QD
     Route: 065
     Dates: start: 2019, end: 20200622

REACTIONS (8)
  - Trigger finger [Recovering/Resolving]
  - Hypertension [Unknown]
  - Cataract [Unknown]
  - Joint swelling [Recovered/Resolved]
  - Weight decreased [Unknown]
  - Bone density decreased [Unknown]
  - Hyperhidrosis [Unknown]
  - Arthralgia [Recovering/Resolving]

NARRATIVE: CASE EVENT DATE: 2019
